FAERS Safety Report 8584935-4 (Version None)
Quarter: 2012Q3

REPORT INFORMATION
  Report Type: 
  Country: None (occurrence: None)
  Receive Date: 20120810
  Receipt Date: 20120802
  Transmission Date: 20120928
  Serious: Yes (Hospitalization)
  Sender: FDA-Public Use
  Company Number: US-VERTEX PHARMACEUTICALS INC.-AE-2012-011587

PATIENT
  Sex: Female
  Weight: 92.162 kg

DRUGS (3)
  1. COPEGUS [Concomitant]
     Indication: HEPATITIS C
     Route: 048
     Dates: start: 20120705
  2. PEGASYS [Concomitant]
     Indication: HEPATITIS C
     Route: 058
     Dates: start: 20120705
  3. INCIVEK [Suspect]
     Indication: HEPATITIS C
     Route: 048
     Dates: start: 20120705

REACTIONS (4)
  - INTERNATIONAL NORMALISED RATIO DECREASED [None]
  - DYSPNOEA [None]
  - ANAEMIA [None]
  - PNEUMONIA [None]
